FAERS Safety Report 8623045-4 (Version None)
Quarter: 2012Q3

REPORT INFORMATION
  Report Type: 
  Country: None (occurrence: None)
  Receive Date: 20120827
  Receipt Date: 20120819
  Transmission Date: 20120928
  Serious: Yes (Hospitalization)
  Sender: FDA-Public Use
  Company Number: CA-JNJFOC-20120809937

PATIENT
  Sex: Female
  Weight: 43 kg

DRUGS (3)
  1. PENTASA [Concomitant]
     Route: 065
  2. ENTOCORT EC [Concomitant]
     Route: 065
  3. REMICADE [Suspect]
     Indication: CROHN'S DISEASE
     Route: 042

REACTIONS (1)
  - CHOLECYSTITIS [None]
